FAERS Safety Report 9366877 (Version 1)
Quarter: 2013Q2

REPORT INFORMATION
  Report Type: Spontaneous
  Country: US (occurrence: US)
  Receive Date: 20130625
  Receipt Date: 20130625
  Transmission Date: 20140414
  Serious: Yes (Other)
  Sender: FDA-Public Use
  Company Number: US-GLAXOSMITHKLINE-A1027841A

PATIENT
  Age: 60 Year
  Sex: Female

DRUGS (3)
  1. VALTREX [Suspect]
     Indication: PROPHYLAXIS
     Dosage: 500MG TWICE PER DAY
     Route: 048
     Dates: start: 20130525, end: 20130613
  2. VITAMINS [Concomitant]
  3. B COMPLEX [Concomitant]

REACTIONS (4)
  - Hypertension [Not Recovered/Not Resolved]
  - Back pain [Not Recovered/Not Resolved]
  - Renal pain [Not Recovered/Not Resolved]
  - Renal disorder [Not Recovered/Not Resolved]
